FAERS Safety Report 7463407-4 (Version None)
Quarter: 2011Q2

REPORT INFORMATION
  Report Type: 
  Country: None (occurrence: None)
  Receive Date: 20110506
  Receipt Date: 20110429
  Transmission Date: 20111010
  Serious: Yes (Other)
  Sender: FDA-Public Use
  Company Number: A0926164A

PATIENT
  Age: 19 Year
  Sex: Female

DRUGS (1)
  1. VALTREX [Suspect]
     Route: 048
     Dates: start: 20110401

REACTIONS (3)
  - NEPHROLITHIASIS [None]
  - HAEMATURIA [None]
  - VOMITING [None]
